FAERS Safety Report 4407286-8 (Version None)
Quarter: 2004Q3

REPORT INFORMATION
  Report Type: 
  Country: None (occurrence: None)
  Receive Date: 20040721
  Receipt Date: 20040707
  Transmission Date: 20050211
  Serious: Yes (Death)
  Sender: FDA-Public Use
  Company Number: USA040771652

PATIENT
  Sex: Female

DRUGS (1)
  1. XIGRIS [Suspect]
     Dates: end: 20040630

REACTIONS (3)
  - BLOOD PHOSPHORUS INCREASED [None]
  - BLOOD POTASSIUM INCREASED [None]
  - MEDICATION ERROR [None]
